FAERS Safety Report 15822936 (Version 2)
Quarter: 2019Q1

REPORT INFORMATION
  Report Type: Report from Study
  Country: ZA (occurrence: ZA)
  Receive Date: 20190114
  Receipt Date: 20190306
  Transmission Date: 20190417
  Serious: Yes (Hospitalization)
  Sender: FDA-Public Use
  Company Number: ZA-SA-2019SA008549

PATIENT
  Age: 43 Year
  Sex: Male

DRUGS (8)
  1. ZARTAN [Concomitant]
     Active Substance: LOSARTAN POTASSIUM
     Dosage: BB-100 MG
     Dates: start: 20161110
  2. DISPRIN [Concomitant]
     Active Substance: ASPIRIN
     Dosage: BB-1 MG
     Dates: start: 20181119
  3. GLICLAZIDE [Concomitant]
     Active Substance: GLICLAZIDE
     Dosage: BS-60 MG | BB-60 MG
     Dates: start: 20161110
  4. BILOCOR [Concomitant]
     Active Substance: BISOPROLOL FUMARATE
     Dosage: BB-5 MG
     Dates: start: 20161110
  5. OPTISULIN (INSULIN GLARGINE) [Suspect]
     Active Substance: INSULIN GLARGINE
     Dosage: BT-20 UNITS
     Dates: start: 20181109
  6. ADCO-SIMVASTATIN [Concomitant]
     Active Substance: SIMVASTATIN
     Dosage: BT-40 MG
     Dates: start: 20161110
  7. NO STUDY DRUG GIVEN [Suspect]
     Active Substance: UNSPECIFIED INGREDIENT
     Dosage: UNK
  8. MENGEN [Concomitant]
     Active Substance: METFORMIN HYDROCHLORIDE
     Dosage: BS-1000 MG | BB-1000 MG
     Dates: start: 20161110

REACTIONS (2)
  - Coronary artery bypass [Unknown]
  - Cardiac disorder [Not Recovered/Not Resolved]

NARRATIVE: CASE EVENT DATE: 20190109
